FAERS Safety Report 9801509 (Version 1)
Quarter: 2014Q1

REPORT INFORMATION
  Report Type: Spontaneous
  Country: US (occurrence: US)
  Receive Date: 20140107
  Receipt Date: 20140107
  Transmission Date: 20141002
  Serious: No
  Sender: FDA-Public Use
  Company Number: US-GILEAD-US-CVT-100582

PATIENT
  Sex: Male

DRUGS (2)
  1. RANEXA [Suspect]
  2. VIAGRA [Concomitant]

REACTIONS (1)
  - Inhibitory drug interaction [Unknown]
